FAERS Safety Report 6013566 (Version 15)
Quarter: 2013Q3

REPORT INFORMATION
  Report Type: Spontaneous
  Country: US (occurrence: US)
  Receive Date: 20060328
  Receipt Date: 20130731
  Transmission Date: 20140515
  Serious: Yes (Death, Hospitalization, Other)
  Sender: FDA-Public Use
  Company Number: PHEH2006US03584

PATIENT
  Age: 59 Year
  Sex: Male
  Weight: 157.37 kg

DRUGS (12)
  1. ZOMETA [Suspect]
     Dosage: 4 MG, QMO
     Dates: start: 20040517, end: 200512
  2. THALIDOMIDE [Concomitant]
     Dosage: 200 MG, QD
     Route: 048
  3. PREDNISONE [Concomitant]
  4. TEQUIN [Concomitant]
     Dosage: 400 MG, QD
  5. PROTONIX [Concomitant]
     Dosage: 40 MG, QD
     Route: 048
  6. LOVENOX [Concomitant]
     Dosage: 160 MG, Q12H
  7. ENOXAPARIN [Concomitant]
     Dosage: 150 MG, Q12H
  8. SOLU-MEDROL [Concomitant]
     Dosage: 80 MG, Q12H
     Route: 042
  9. LASIX [Concomitant]
     Dosage: 80 MG, UNK
     Route: 042
  10. LORTAB [Concomitant]
     Dosage: UNK UKN, UNK
  11. DECADRON [Concomitant]
  12. HALOPERIDOL [Concomitant]

REACTIONS (49)
  - Death [Fatal]
  - Plasma cell myeloma [Unknown]
  - Osteonecrosis of jaw [Unknown]
  - Swelling [Unknown]
  - Fistula discharge [Unknown]
  - Tooth fracture [Unknown]
  - Osteomyelitis [Unknown]
  - Fistula [Unknown]
  - Exposed bone in jaw [Unknown]
  - Tooth abscess [Unknown]
  - Injury [Unknown]
  - Pain [Unknown]
  - Anxiety [Unknown]
  - Renal failure chronic [Unknown]
  - Pulmonary embolism [Unknown]
  - Anaemia [Unknown]
  - Pneumonia [Unknown]
  - Respiratory distress [Unknown]
  - Dementia [Unknown]
  - Lung neoplasm malignant [Unknown]
  - Urinary tract infection [Unknown]
  - Bone cancer [Unknown]
  - Depression [Unknown]
  - Neuropathy peripheral [Unknown]
  - Paraesthesia [Unknown]
  - Hyperaesthesia [Unknown]
  - Hemiparesis [Unknown]
  - Benign prostatic hyperplasia [Unknown]
  - Haemochromatosis [Unknown]
  - Diabetes mellitus [Unknown]
  - Fall [Unknown]
  - Mental status changes [Unknown]
  - Tinea infection [Unknown]
  - Aggression [Unknown]
  - Agitation [Unknown]
  - Insomnia [Unknown]
  - Constipation [Unknown]
  - Oedema peripheral [Unknown]
  - Fatigue [Unknown]
  - Obesity [Unknown]
  - Bone fragmentation [Unknown]
  - Osteitis [Unknown]
  - Dental caries [Unknown]
  - Myalgia [Unknown]
  - Psychotic disorder [Unknown]
  - Monoplegia [Unknown]
  - Malignant melanoma [Unknown]
  - Decubitus ulcer [Unknown]
  - Bone pain [Unknown]
